FAERS Safety Report 4539505-1 (Version None)
Quarter: 2004Q4

REPORT INFORMATION
  Report Type: 
  Country: None (occurrence: None)
  Receive Date: 20041227
  Receipt Date: 20041227
  Transmission Date: 20050328
  Serious: No
  Sender: FDA-Public Use
  Company Number: None

PATIENT
  Age: 36 Year
  Sex: Male
  Weight: 67.5 kg

DRUGS (1)
  1. CLOZAPINE 100 MG TABS IVAX [Suspect]
     Indication: SCHIZOAFFECTIVE DISORDER
     Dosage: 200 MG PO BID
     Route: 048
     Dates: start: 20041123, end: 20041203

REACTIONS (1)
  - PLATELET COUNT DECREASED [None]
